FAERS Safety Report 9370595 (Version 4)
Quarter: 2014Q2

REPORT INFORMATION
  Report Type: Spontaneous
  Country: US (occurrence: US)
  Receive Date: 20130626
  Receipt Date: 20140502
  Transmission Date: 20141212
  Serious: Yes (Hospitalization)
  Sender: FDA-Public Use
  Company Number: US-B.I. PHARMACEUTICALS,INC./RIDGEFIELD-2013-BI-17948BP

PATIENT
  Age: 89 Year
  Sex: Male
  Weight: 75.84 kg

DRUGS (7)
  1. PRADAXA [Suspect]
     Indication: ATRIAL FIBRILLATION
     Dosage: 300 MG
     Route: 065
     Dates: start: 20111227, end: 201202
  2. PRADAXA [Suspect]
     Dosage: 150 MG
     Route: 065
     Dates: start: 20120203, end: 20120210
  3. ASPIRIN [Concomitant]
     Dosage: 81 MG
     Route: 065
  4. LISINOPRIL [Concomitant]
     Dosage: 2.5 MG
     Route: 065
     Dates: start: 2010, end: 2012
  5. METOPROLOL [Concomitant]
     Dosage: 25 MG
     Route: 065
     Dates: start: 2010, end: 2012
  6. AMIODARONE [Concomitant]
     Dosage: 400 MG
     Route: 065
     Dates: start: 2010, end: 2012
  7. ADVIL [Concomitant]
     Route: 065

REACTIONS (5)
  - Lower gastrointestinal haemorrhage [Recovered/Resolved]
  - Haemorrhagic anaemia [Unknown]
  - Hypocoagulable state [Unknown]
  - Renal failure acute [Recovered/Resolved]
  - Contusion [Unknown]
